FAERS Safety Report 15416770 (Version 2)
Quarter: 2018Q3

REPORT INFORMATION
  Report Type: Spontaneous
  Country: US (occurrence: US)
  Receive Date: 20180924
  Receipt Date: 20180928
  Transmission Date: 20181010
  Serious: No
  Sender: FDA-Public Use
  Company Number: US-ASTRAZENECA-2018SF10714

PATIENT
  Age: 40 Year
  Sex: Female
  Weight: 81.2 kg

DRUGS (3)
  1. IBRANCE [Suspect]
     Active Substance: PALBOCICLIB
     Dosage: 125.0MG UNKNOWN
     Route: 048
     Dates: start: 20170905
  2. FASLODEX [Suspect]
     Active Substance: FULVESTRANT
     Dosage: ON DAY 1, DAY 15 AND DAY 29
     Route: 030
     Dates: start: 2017
  3. FASLODEX [Suspect]
     Active Substance: FULVESTRANT
     Route: 030

REACTIONS (1)
  - Vaginal odour [Unknown]
